FAERS Safety Report 6956056-5 (Version None)
Quarter: 2010Q3

REPORT INFORMATION
  Report Type: 
  Country: None (occurrence: None)
  Receive Date: 20100830
  Receipt Date: 20100113
  Transmission Date: 20110219
  Serious: No
  Sender: FDA-Public Use
  Company Number: US-AMGEN-KDL395485

PATIENT
  Sex: Female

DRUGS (4)
  1. NEUPOGEN [Suspect]
     Indication: PRODUCT USED FOR UNKNOWN INDICATION
  2. PEGINTERFERON ALFA-2A [Concomitant]
     Dates: start: 20090814
  3. RIBAVIRIN [Concomitant]
     Dates: start: 20090814
  4. VITAMIN D [Concomitant]

REACTIONS (16)
  - ABDOMINAL PAIN UPPER [None]
  - AGEUSIA [None]
  - ASTHENIA [None]
  - CANDIDIASIS [None]
  - CONTUSION [None]
  - DERMATITIS ALLERGIC [None]
  - DIARRHOEA [None]
  - DYSPEPSIA [None]
  - MOUTH ULCERATION [None]
  - PLATELET COUNT DECREASED [None]
  - PRURITUS [None]
  - SKIN REACTION [None]
  - SPIDER VEIN [None]
  - STRESS [None]
  - TONGUE DISCOLOURATION [None]
  - WHITE BLOOD CELL COUNT DECREASED [None]
